FAERS Safety Report 7298465-3 (Version None)
Quarter: 2011Q1

REPORT INFORMATION
  Report Type: 
  Country: None (occurrence: None)
  Receive Date: 20110217
  Receipt Date: 20110211
  Transmission Date: 20110831
  Serious: Yes (Hospitalization)
  Sender: FDA-Public Use
  Company Number: US-JNJFOC-20110203696

PATIENT
  Sex: Male
  Weight: 79.38 kg

DRUGS (12)
  1. ACTOS [Concomitant]
     Indication: TYPE 2 DIABETES MELLITUS
     Route: 048
  2. ALBUTEROL [Concomitant]
     Indication: ASTHMA
     Dosage: AS NEEDED
     Route: 055
  3. LISINOPRIL [Concomitant]
     Indication: HYPERTENSION
     Route: 048
  4. ADVAIR [Concomitant]
     Indication: ASTHMA
     Dosage: 250/50 MG, 2 PUFFS DAILY
     Route: 055
  5. FENOFIBRATE [Concomitant]
     Indication: BLOOD CHOLESTEROL INCREASED
     Route: 048
  6. REMICADE [Suspect]
     Indication: CROHN'S DISEASE
     Route: 042
  7. REMICADE [Suspect]
     Route: 042
  8. AMARYL [Concomitant]
     Indication: TYPE 2 DIABETES MELLITUS
     Route: 048
  9. LIPITOR [Concomitant]
     Indication: BLOOD CHOLESTEROL INCREASED
     Route: 048
  10. IMURAN [Concomitant]
     Indication: CROHN'S DISEASE
     Route: 048
  11. NEXIUM [Concomitant]
     Indication: GASTROOESOPHAGEAL REFLUX DISEASE
     Route: 048
  12. SPIRIVA [Concomitant]
     Indication: ASTHMA
     Dosage: 1 PUFF DAILY
     Route: 055

REACTIONS (12)
  - ARTHRALGIA [None]
  - CHILLS [None]
  - INFUSION RELATED REACTION [None]
  - FLUSHING [None]
  - HYPOTENSION [None]
  - RECTAL HAEMORRHAGE [None]
  - DEHYDRATION [None]
  - LOSS OF CONSCIOUSNESS [None]
  - OEDEMA PERIPHERAL [None]
  - DIARRHOEA [None]
  - BACK PAIN [None]
  - HAEMOGLOBIN DECREASED [None]
